FAERS Safety Report 15049951 (Version 1)
Quarter: 2018Q2

REPORT INFORMATION
  Report Type: Spontaneous
  Country: US (occurrence: US)
  Receive Date: 20180601
  Receipt Date: 20180601
  Transmission Date: 20180711
  Serious: Yes (Hospitalization)
  Sender: FDA-Public Use
  Company Number: None

PATIENT
  Age: 78 Year
  Sex: Male

DRUGS (10)
  1. NITROGLYCERIN SUB 0.4 MG [Concomitant]
  2. AORVASTATIN [Concomitant]
  3. POTASSIUM [Concomitant]
     Active Substance: POTASSIUM
  4. GABAPENTIN. [Concomitant]
     Active Substance: GABAPENTIN
  5. IMATINIB MES 100MG TAB [Suspect]
     Active Substance: IMATINIB MESYLATE
     Indication: RHEUMATOID ARTHRITIS
     Route: 048
     Dates: start: 20160301
  6. NIACIN POWDER [Concomitant]
  7. VITAMIN D3 [Concomitant]
     Active Substance: CHOLECALCIFEROL
  8. FISH OIL [Concomitant]
     Active Substance: FISH OIL
  9. ZOLPIDEM [Concomitant]
     Active Substance: ZOLPIDEM\ZOLPIDEM TARTRATE
  10. AMLODIPINE [Concomitant]
     Active Substance: AMLODIPINE BESYLATE

REACTIONS (1)
  - Cardiac disorder [None]
